FAERS Safety Report 25653930 (Version 2)
Quarter: 2025Q3

REPORT INFORMATION
  Report Type: Spontaneous
  Country: US (occurrence: US)
  Receive Date: 20250807
  Receipt Date: 20250829
  Transmission Date: 20251020
  Serious: Yes (Hospitalization)
  Sender: NEUROCRINE BIOSCIENCES
  Company Number: US-NEUROCRINE BIOSCIENCES INC.-2025NBI09846

PATIENT
  Age: 8 Year
  Sex: Male

DRUGS (4)
  1. CRENESSITY [Suspect]
     Active Substance: CRINECERFONT
     Indication: Adrenogenital syndrome
     Route: 065
     Dates: start: 202502
  2. HYDROCORTISONE [Concomitant]
     Active Substance: HYDROCORTISONE
     Dates: start: 20250712
  3. HYDROCORTISONE [Concomitant]
     Active Substance: HYDROCORTISONE
  4. FLORINEF ACETATE [Concomitant]
     Active Substance: FLUDROCORTISONE ACETATE
     Indication: Adrenogenital syndrome
     Route: 048

REACTIONS (4)
  - Viral infection [Recovered/Resolved]
  - Adrenocortical insufficiency acute [Recovered/Resolved]
  - Lethargy [Recovered/Resolved]
  - Respiratory disorder [Recovered/Resolved]

NARRATIVE: CASE EVENT DATE: 20250710
